FAERS Safety Report 6285616-2 (Version None)
Quarter: 2009Q3

REPORT INFORMATION
  Report Type: 
  Country: None (occurrence: None)
  Receive Date: 20090724
  Receipt Date: 20090721
  Transmission Date: 20100115
  Serious: Yes (Hospitalization)
  Sender: FDA-Public Use
  Company Number: IMIQUIMOD-05

PATIENT
  Sex: Male
  Weight: 131.5431 kg

DRUGS (2)
  1. IMIQUIMOD 5% CREAM, [Suspect]
     Indication: ACTINIC KERATOSIS
     Dosage: 1 APPL TWICE A WEEK,060
  2. ALDARA [Suspect]
     Indication: ACTINIC KERATOSIS
     Dosage: 1 APPL TWICE A WEEK, 060

REACTIONS (2)
  - ADHESION [None]
  - INTESTINAL OBSTRUCTION [None]
